FAERS Safety Report 6144612-6 (Version None)
Quarter: 2009Q2

REPORT INFORMATION
  Report Type: 
  Country: None (occurrence: None)
  Receive Date: 20090401
  Receipt Date: 20090318
  Transmission Date: 20091009
  Serious: Yes (Hospitalization, Other)
  Sender: FDA-Public Use
  Company Number: A-JP2009-23757

PATIENT
  Age: 51 Year
  Sex: Female
  Weight: 52 kg

DRUGS (7)
  1. TRACLEER [Suspect]
     Indication: PULMONARY ARTERIAL HYPERTENSION
     Dosage: 125 MG, BID, ORAL; 62.5 MG, QD, ORAL
     Route: 048
     Dates: start: 20081204, end: 20081210
  2. TRACLEER [Suspect]
     Indication: PULMONARY ARTERIAL HYPERTENSION
     Dosage: 125 MG, BID, ORAL; 62.5 MG, QD, ORAL
     Route: 048
     Dates: start: 20081211, end: 20090204
  3. BERAPROST (BERAPROST) [Concomitant]
  4. SILDENAFIL CITRATE [Concomitant]
  5. WARFARIN SODIUM [Concomitant]
  6. FERROUS SODIUM CITRATE (FERROUS SODIUM CITRATE) [Concomitant]
  7. OXYGEN (OXYGEN) [Concomitant]

REACTIONS (4)
  - HYPOPHAGIA [None]
  - PLATELET COUNT DECREASED [None]
  - PYREXIA [None]
  - WHITE BLOOD CELL COUNT DECREASED [None]
